FAERS Safety Report 13573000 (Version 1)
Quarter: 2017Q2

REPORT INFORMATION
  Report Type: Spontaneous
  Country: IE (occurrence: IE)
  Receive Date: 20170523
  Receipt Date: 20170523
  Transmission Date: 20170830
  Serious: Yes (Hospitalization)
  Sender: FDA-Public Use
  Company Number: IE-ASTRAZENECA-2017SE53853

PATIENT
  Sex: Female

DRUGS (1)
  1. MEROPENEM. [Suspect]
     Active Substance: MEROPENEM
     Dosage: 1000MG IN 100ML SODIUM CHLORIDE 0.9% BP IN A SV200 INTERMATE
     Route: 042
     Dates: start: 20170510, end: 20170510

REACTIONS (1)
  - Malaise [Unknown]
